FAERS Safety Report 23484031 (Version 1)
Quarter: 2024Q1

REPORT INFORMATION
  Report Type: Spontaneous
  Country: FR (occurrence: FR)
  Receive Date: 20240205
  Receipt Date: 20240205
  Transmission Date: 20240410
  Serious: Yes (Other)
  Sender: FDA-Public Use
  Company Number: FR-CELLTRION INC.-2024FR002453

PATIENT

DRUGS (5)
  1. RITUXIMAB [Suspect]
     Active Substance: RITUXIMAB
     Indication: B-cell lymphoma
     Dosage: UNK
     Route: 042
     Dates: start: 20231201, end: 20231201
  2. GEMCITABINE [Suspect]
     Active Substance: GEMCITABINE
     Indication: B-cell lymphoma
     Dosage: UNK
     Route: 042
     Dates: start: 20231201, end: 20231201
  3. DEXAMETHASONE [Suspect]
     Active Substance: DEXAMETHASONE
     Indication: COVID-19
     Dosage: UNK
     Route: 042
     Dates: start: 20231202, end: 20231206
  4. PAXLOVID [Suspect]
     Active Substance: NIRMATRELVIR\RITONAVIR
     Indication: COVID-19
     Dosage: UNK
     Route: 048
     Dates: start: 20231202, end: 20231207
  5. OXALIPLATIN [Suspect]
     Active Substance: OXALIPLATIN
     Indication: B-cell lymphoma
     Dosage: UNK
     Route: 042
     Dates: start: 20231201, end: 20231201

REACTIONS (1)
  - Hepatic cytolysis [Recovering/Resolving]

NARRATIVE: CASE EVENT DATE: 20231206
